FAERS Safety Report 8233071-5 (Version None)
Quarter: 2012Q1

REPORT INFORMATION
  Report Type: 
  Country: None (occurrence: None)
  Receive Date: 20120326
  Receipt Date: 20120319
  Transmission Date: 20120608
  Serious: No
  Sender: FDA-Public Use
  Company Number: US-BIOGENIDEC-2012BI009652

PATIENT
  Age: 59 Year
  Sex: Female

DRUGS (1)
  1. TYSABRI [Suspect]
     Indication: MULTIPLE SCLEROSIS
     Route: 042
     Dates: start: 20070417

REACTIONS (6)
  - CHONDROPATHY [None]
  - CARTILAGE INJURY [None]
  - FALL [None]
  - ARTHRALGIA [None]
  - LIGAMENT SPRAIN [None]
  - MUSCULAR WEAKNESS [None]
